FAERS Safety Report 17816411 (Version 4)
Quarter: 2021Q3

REPORT INFORMATION
  Report Type: Spontaneous
  Country: US (occurrence: US)
  Receive Date: 20200522
  Receipt Date: 20210903
  Transmission Date: 20211014
  Serious: Yes (Other)
  Sender: FDA-Public Use
  Company Number: US-PFIZER INC-2020199487

PATIENT
  Age: 69 Year
  Sex: Female

DRUGS (1)
  1. XELJANZ XR [Suspect]
     Active Substance: TOFACITINIB CITRATE
     Indication: RHEUMATOID ARTHRITIS
     Dosage: 11 MG, DAILY
     Route: 048
     Dates: start: 2015

REACTIONS (16)
  - Blood pressure decreased [Unknown]
  - Gait disturbance [Unknown]
  - Back pain [Unknown]
  - Eye swelling [Recovering/Resolving]
  - Pain [Unknown]
  - Product dose omission in error [Unknown]
  - Herpes zoster [Unknown]
  - Urinary tract infection [Unknown]
  - Dizziness [Unknown]
  - Arthralgia [Unknown]
  - Musculoskeletal stiffness [Recovered/Resolved]
  - Asthenia [Unknown]
  - Neck pain [Unknown]
  - Heart rate decreased [Unknown]
  - Cellulitis [Unknown]
  - Lung disorder [Unknown]

NARRATIVE: CASE EVENT DATE: 202004
